FAERS Safety Report 5524334-2 (Version None)
Quarter: 2007Q4

REPORT INFORMATION
  Report Type: 
  Country: None (occurrence: None)
  Receive Date: 20071121
  Receipt Date: 20071112
  Transmission Date: 20080405
  Serious: Yes (Disabling)
  Sender: FDA-Public Use
  Company Number: GB-PFIZER INC-2007095815

PATIENT
  Age: 72 Year
  Sex: Male
  Weight: 84 kg

DRUGS (5)
  1. REVATIO [Suspect]
     Indication: PULMONARY HYPERTENSION
     Route: 048
  2. AMILORIDE HYDROCHLORIDE [Concomitant]
     Indication: DIURETIC THERAPY
     Route: 048
     Dates: start: 20070614
  3. BUMETANIDE [Concomitant]
     Indication: POLYURIA
     Route: 048
     Dates: start: 19990101
  4. SLOZEM [Concomitant]
     Indication: PULMONARY HYPERTENSION
     Route: 048
     Dates: start: 20060616
  5. WARFARIN SODIUM [Concomitant]
     Indication: PULMONARY EMBOLISM
     Route: 048
     Dates: start: 19990101

REACTIONS (3)
  - ARTHRALGIA [None]
  - JOINT SWELLING [None]
  - SWELLING [None]
